FAERS Safety Report 11723155 (Version 1)
Quarter: 2015Q4

REPORT INFORMATION
  Report Type: Spontaneous
  Country: NO (occurrence: NO)
  Receive Date: 20151111
  Receipt Date: 20151111
  Transmission Date: 20160304
  Serious: Yes (Other)
  Sender: FDA-Public Use
  Company Number: NO-FRESENIUS KABI-FK201505746

PATIENT
  Age: 33 Year
  Sex: Female

DRUGS (7)
  1. CLINDAMYCIN [Suspect]
     Active Substance: CLINDAMYCIN\CLINDAMYCIN PHOSPHATE
     Indication: CLOSTRIDIUM DIFFICILE INFECTION
     Route: 065
     Dates: start: 201412
  2. TRAMETINIB [Suspect]
     Active Substance: TRAMETINIB
     Indication: METASTATIC MALIGNANT MELANOMA
     Route: 065
     Dates: start: 20150110
  3. DABRAFENIB [Suspect]
     Active Substance: DABRAFENIB
     Indication: METASTATIC MALIGNANT MELANOMA
     Route: 065
     Dates: start: 20141218, end: 20150413
  4. VANCOMYCIN (MANUFACTURER UNKNOWN) [Suspect]
     Active Substance: VANCOMYCIN
     Indication: CLOSTRIDIUM DIFFICILE INFECTION
     Route: 065
  5. DABRAFENIB [Suspect]
     Active Substance: DABRAFENIB
     Route: 065
     Dates: start: 20150416
  6. DICLOXACILLIN [Suspect]
     Active Substance: DICLOXACILLIN
     Indication: CLOSTRIDIUM DIFFICILE INFECTION
     Route: 065
  7. METRONIDAZOLE. [Suspect]
     Active Substance: METRONIDAZOLE
     Indication: CLOSTRIDIUM DIFFICILE INFECTION
     Route: 065
     Dates: start: 20150320, end: 20150330

REACTIONS (6)
  - Pyrexia [Unknown]
  - Dehydration [Unknown]
  - Seizure [Unknown]
  - Erythema [Unknown]
  - Rash [Unknown]
  - Hyperaesthesia [Unknown]

NARRATIVE: CASE EVENT DATE: 20150409
